FAERS Safety Report 9604549 (Version 1)
Quarter: 2013Q4

REPORT INFORMATION
  Report Type: Spontaneous
  Country: GB (occurrence: GB)
  Receive Date: 20131008
  Receipt Date: 20131008
  Transmission Date: 20140711
  Serious: Yes (Hospitalization, Other)
  Sender: FDA-Public Use
  Company Number: GB-PFIZER INC-2013283429

PATIENT
  Age: 39 Year
  Sex: Female
  Weight: 76.3 kg

DRUGS (7)
  1. OXALIPLATIN [Suspect]
     Indication: NEOPLASM MALIGNANT
     Dosage: 175 MG, UNK
     Route: 042
     Dates: start: 201209
  2. AVASTIN [Suspect]
     Indication: COLORECTAL CANCER METASTATIC
     Dosage: 575 MG (REPORTED AS 3/52)
     Route: 042
     Dates: start: 20130123, end: 20130306
  3. DOMPERIDONE [Concomitant]
     Dosage: UNK
  4. LOPERAMIDE [Concomitant]
     Dosage: UNK
  5. DEXAMETHASONE [Concomitant]
     Dosage: 4 G, UNK
     Route: 048
  6. XELODA [Concomitant]
     Dosage: 1500 MG, UNK (21 DOSES)
     Route: 048
     Dates: start: 201209, end: 20130302
  7. CAPTOPRIL [Concomitant]
     Dosage: UNK
     Route: 065
     Dates: start: 201209

REACTIONS (2)
  - Platelet count decreased [Recovered/Resolved]
  - Stoma site haemorrhage [Recovered/Resolved]
